FAERS Safety Report 6661572-X (Version None)
Quarter: 2010Q1

REPORT INFORMATION
  Report Type: 
  Country: None (occurrence: None)
  Receive Date: 20100329
  Receipt Date: 20100318
  Transmission Date: 20100710
  Serious: Yes (Hospitalization)
  Sender: FDA-Public Use
  Company Number: 232868J10USA

PATIENT
  Age: 48 Year
  Sex: Female

DRUGS (4)
  1. REBIF [Suspect]
     Indication: MULTIPLE SCLEROSIS
     Dates: start: 20060316, end: 20090601
  2. BLOOD PRESSURE MEDICATION (ANTINYPERTENSIVES) [Concomitant]
  3. GABAPENTIN [Concomitant]
  4. HYDROCODONE (HYDROCODONE) [Concomitant]

REACTIONS (8)
  - EYE HAEMORRHAGE [None]
  - HYPERTENSION [None]
  - INFLUENZA LIKE ILLNESS [None]
  - INJECTION SITE RASH [None]
  - NAUSEA [None]
  - PNEUMONIA [None]
  - PULMONARY OEDEMA [None]
  - SYSTEMIC LUPUS ERYTHEMATOSUS [None]
